FAERS Safety Report 13043307 (Version 1)
Quarter: 2016Q4

REPORT INFORMATION
  Report Type: Spontaneous
  Country: BR (occurrence: BR)
  Receive Date: 20161219
  Receipt Date: 20161219
  Transmission Date: 20170207
  Serious: Yes (Other)
  Sender: FDA-Public Use
  Company Number: BR-BAUSCH-BL-2016-031846

PATIENT
  Age: 58 Year
  Sex: Female
  Weight: 82 kg

DRUGS (9)
  1. LOSARTANA [Concomitant]
     Active Substance: LOSARTAN
     Indication: PRODUCT USED FOR UNKNOWN INDICATION
  2. LONIUM [Concomitant]
     Indication: PRODUCT USED FOR UNKNOWN INDICATION
  3. CLOXAZOLAM [Concomitant]
     Active Substance: CLOXAZOLAM
     Indication: PRODUCT USED FOR UNKNOWN INDICATION
  4. WELLBUTRIN XL [Suspect]
     Active Substance: BUPROPION HYDROCHLORIDE
     Indication: DEPRESSION
     Route: 048
  5. LEVOTHYROXINE SODIUM. [Concomitant]
     Active Substance: LEVOTHYROXINE SODIUM
     Indication: PRODUCT USED FOR UNKNOWN INDICATION
  6. PANTOPRAZOLE [Concomitant]
     Active Substance: PANTOPRAZOLE SODIUM
     Indication: PRODUCT USED FOR UNKNOWN INDICATION
  7. WELLBUTRIN XL [Suspect]
     Active Substance: BUPROPION HYDROCHLORIDE
     Dosage: ADMINISTRATED 2 TABLETS
     Route: 048
  8. ATENOLOL. [Concomitant]
     Active Substance: ATENOLOL
     Indication: PRODUCT USED FOR UNKNOWN INDICATION
  9. APRAZ [Concomitant]
     Indication: PRODUCT USED FOR UNKNOWN INDICATION

REACTIONS (13)
  - Fatigue [Recovered/Resolved]
  - Memory impairment [Recovered/Resolved]
  - Somnolence [Recovered/Resolved]
  - Hyperglycaemia [Recovered/Resolved]
  - Panic reaction [Recovered/Resolved]
  - Tachycardia [Unknown]
  - Diarrhoea [Recovered/Resolved]
  - Malaise [Recovered/Resolved]
  - Apparent death [Recovered/Resolved]
  - Medication residue present [Recovered/Resolved]
  - Feeling jittery [Recovered/Resolved]
  - Product quality issue [Unknown]
  - Asthenia [Recovered/Resolved]
